FAERS Safety Report 9339265 (Version 2)
Quarter: 2013Q2

REPORT INFORMATION
  Report Type: Spontaneous
  Country: JP (occurrence: JP)
  Receive Date: 20130610
  Receipt Date: 20130619
  Transmission Date: 20140414
  Serious: Yes (Hospitalization, Other)
  Sender: FDA-Public Use
  Company Number: JP-PFIZER INC-2013111703

PATIENT
  Age: 54 Year
  Sex: Male
  Weight: 61.7 kg

DRUGS (4)
  1. TORISEL [Suspect]
     Indication: RENAL CELL CARCINOMA
     Dosage: 25 MG, WEEKLY
     Route: 042
     Dates: start: 20121207, end: 20130322
  2. KAYEXALATE [Concomitant]
     Indication: HYPERKALAEMIA
     Dosage: 3.27 G, 3X/DAY
     Route: 048
  3. RENAGEL [Concomitant]
     Indication: PRURITUS
     Dosage: 750 MG, 2X/DAY
     Route: 048
  4. CALTAN OD [Concomitant]
     Indication: HYPERPHOSPHATAEMIA
     Dosage: 500 MG, 2X/DAY
     Route: 048

REACTIONS (6)
  - Interstitial lung disease [Recovering/Resolving]
  - Acute respiratory failure [Unknown]
  - Left ventricular hypertrophy [Unknown]
  - Bronchitis chronic [Unknown]
  - Pleural effusion [Recovering/Resolving]
  - C-reactive protein increased [Unknown]
